FAERS Safety Report 17122854 (Version 7)
Quarter: 2020Q3

REPORT INFORMATION
  Report Type: Spontaneous
  Country: US (occurrence: US)
  Receive Date: 20191206
  Receipt Date: 20200722
  Transmission Date: 20201102
  Serious: No
  Sender: FDA-Public Use
  Company Number: US-JNJFOC-20191142185

PATIENT
  Age: 35 Year
  Sex: Male
  Weight: 93.52 kg

DRUGS (9)
  1. RISPERDAL CONSTA [Suspect]
     Active Substance: RISPERIDONE
     Route: 030
     Dates: start: 20200504
  2. RISPERDAL CONSTA [Suspect]
     Active Substance: RISPERIDONE
     Route: 030
     Dates: start: 20200310
  3. RISPERDAL CONSTA [Suspect]
     Active Substance: RISPERIDONE
     Route: 030
     Dates: start: 2006
  4. CRESTOR [Concomitant]
     Active Substance: ROSUVASTATIN CALCIUM
     Indication: PRODUCT USED FOR UNKNOWN INDICATION
     Route: 065
  5. RISPERDAL CONSTA [Suspect]
     Active Substance: RISPERIDONE
     Route: 030
     Dates: start: 20200420
  6. RISPERDAL CONSTA [Suspect]
     Active Substance: RISPERIDONE
     Indication: DEPRESSION
     Route: 030
     Dates: start: 2017
  7. RISPERDAL CONSTA [Suspect]
     Active Substance: RISPERIDONE
     Route: 030
     Dates: start: 2016
  8. RISPERDAL CONSTA [Suspect]
     Active Substance: RISPERIDONE
     Route: 030
     Dates: start: 20200518
  9. RISPERDAL CONSTA [Suspect]
     Active Substance: RISPERIDONE
     Route: 030
     Dates: start: 20200220

REACTIONS (17)
  - Adverse drug reaction [Unknown]
  - Liver disorder [Unknown]
  - Blood glucose increased [Unknown]
  - White blood cell count decreased [Unknown]
  - Hepatic enzyme abnormal [Unknown]
  - Sedation [Unknown]
  - Suspected counterfeit product [Unknown]
  - Condition aggravated [Unknown]
  - Blood pressure measurement [Unknown]
  - Nervousness [Unknown]
  - General physical health deterioration [Unknown]
  - Enzyme abnormality [Unknown]
  - Platelet count decreased [Unknown]
  - Visual impairment [Unknown]
  - Renal disorder [Unknown]
  - Illness [Unknown]
  - Skin mass [Unknown]
